FAERS Safety Report 8521732-X (Version None)
Quarter: 2012Q3

REPORT INFORMATION
  Report Type: 
  Country: None (occurrence: None)
  Receive Date: 20120719
  Receipt Date: 20120716
  Transmission Date: 20120928
  Serious: Yes (Death, Other)
  Sender: FDA-Public Use
  Company Number: PHHY2012US061145

PATIENT

DRUGS (3)
  1. CISPLATIN [Suspect]
  2. IRINOTECAN HCL [Suspect]
  3. RADIATION THERAPY [Suspect]
     Dosage: 54 GY, UNK

REACTIONS (2)
  - TRACHEO-OESOPHAGEAL FISTULA [None]
  - OBSTRUCTIVE AIRWAYS DISORDER [None]
